FAERS Safety Report 6901017-5 (Version None)
Quarter: 2010Q3

REPORT INFORMATION
  Report Type: 
  Country: None (occurrence: None)
  Receive Date: 20100803
  Receipt Date: 20100727
  Transmission Date: 20110219
  Serious: Yes (Other)
  Sender: FDA-Public Use
  Company Number: A0873327A

PATIENT
  Sex: Female
  Weight: 63 kg

DRUGS (1)
  1. NIQUITIN 21MG [Suspect]
     Indication: SMOKING CESSATION THERAPY
     Dosage: 1PAT PER DAY
     Route: 062
     Dates: start: 20100725, end: 20100725

REACTIONS (9)
  - APPLICATION SITE PRURITUS [None]
  - BLOOD PRESSURE DECREASED [None]
  - DIARRHOEA [None]
  - DIZZINESS [None]
  - DRUG TOXICITY [None]
  - HEADACHE [None]
  - PERIPHERAL COLDNESS [None]
  - SKIN DISCOLOURATION [None]
  - VOMITING [None]
